FAERS Safety Report 6781454-2 (Version None)
Quarter: 2010Q2

REPORT INFORMATION
  Report Type: 
  Country: None (occurrence: None)
  Receive Date: 20100621
  Receipt Date: 20100609
  Transmission Date: 20101027
  Serious: Yes (Other)
  Sender: FDA-Public Use
  Company Number: JP-SANOFI-AVENTIS-2010SA033236

PATIENT
  Age: 88 Year
  Sex: Female

DRUGS (2)
  1. LASIX [Suspect]
     Indication: DRUG USE FOR UNKNOWN INDICATION
     Route: 048
  2. ALDACTONE [Concomitant]

REACTIONS (2)
  - DEMENTIA [None]
  - RENAL IMPAIRMENT [None]
